FAERS Safety Report 10285669 (Version 2)
Quarter: 2014Q3

REPORT INFORMATION
  Report Type: Spontaneous
  Country: JP (occurrence: JP)
  Receive Date: 20140709
  Receipt Date: 20140718
  Transmission Date: 20150326
  Serious: No
  Sender: FDA-Public Use
  Company Number: JP-AMGEN-JPNSP2014051119

PATIENT
  Age: 89 Year
  Sex: Male
  Weight: 54 kg

DRUGS (7)
  1. LEUPLIN [Concomitant]
     Active Substance: LEUPROLIDE ACETATE
     Dosage: UNK
     Route: 065
  2. BICALUTAMIDE. [Concomitant]
     Active Substance: BICALUTAMIDE
     Indication: PROSTATE CANCER
     Dosage: 80 MG, QD
     Route: 048
     Dates: start: 20130418
  3. DENOTAS [Concomitant]
     Active Substance: CALCIUM CARBONATE\CHOLECALCIFEROL\MAGNESIUM CARBONATE
     Dosage: UNK
     Route: 065
  4. RESTREAM [Concomitant]
     Indication: PROSTATE CANCER
     Dosage: 0.2 MG, QD
     Route: 048
     Dates: start: 20121029
  5. REBAMIPIDE [Concomitant]
     Active Substance: REBAMIPIDE
     Dosage: 100 MG, QD
     Route: 048
     Dates: start: 20140125
  6. PRALIA [Suspect]
     Active Substance: DENOSUMAB
     Indication: OSTEOPOROSIS
     Dosage: 60 MG, UNK
     Route: 065
     Dates: start: 20140522
  7. MOBIC [Concomitant]
     Active Substance: MELOXICAM
     Indication: SPINAL OSTEOARTHRITIS
     Dosage: 10 MG, QD
     Route: 048
     Dates: start: 20140120

REACTIONS (1)
  - Hypophosphataemia [Not Recovered/Not Resolved]

NARRATIVE: CASE EVENT DATE: 20140626
